FAERS Safety Report 4871737-5 (Version None)
Quarter: 2006Q1

REPORT INFORMATION
  Report Type: 
  Country: None (occurrence: None)
  Receive Date: 20060104
  Receipt Date: 20050318
  Transmission Date: 20060701
  Serious: No
  Sender: FDA-Public Use
  Company Number: US-BRISTOL-MYERS SQUIBB COMPANY-12903753

PATIENT
  Age: 38 Year
  Sex: Female
  Weight: 59 kg

DRUGS (3)
  1. DESYREL [Suspect]
     Dates: start: 20040901
  2. SERZONE [Suspect]
     Indication: INSOMNIA
     Dates: start: 19980101, end: 19980101
  3. SINEQUAN [Concomitant]

REACTIONS (1)
  - THINKING ABNORMAL [None]
